FAERS Safety Report 7014062-9 (Version None)
Quarter: 2010Q3

REPORT INFORMATION
  Report Type: 
  Country: None (occurrence: None)
  Receive Date: 20100927
  Receipt Date: 20100915
  Transmission Date: 20110219
  Serious: Yes (Death)
  Sender: FDA-Public Use
  Company Number: US-BIOGENIDEC-2010BI032605

PATIENT
  Sex: Male

DRUGS (3)
  1. AVONEX [Suspect]
     Indication: MULTIPLE SCLEROSIS
     Route: 030
     Dates: start: 20100801
  2. AVONEX [Suspect]
     Route: 030
     Dates: start: 19980501, end: 20031101
  3. AVONEX [Suspect]
     Route: 030
     Dates: start: 20031101, end: 20050501

REACTIONS (2)
  - MULTIPLE SCLEROSIS [None]
  - NEOPLASM MALIGNANT [None]
